FAERS Safety Report 22030123 (Version 1)
Quarter: 2023Q1

REPORT INFORMATION
  Report Type: Spontaneous
  Country: US (occurrence: US)
  Receive Date: 20230223
  Receipt Date: 20230223
  Transmission Date: 20230417
  Serious: Yes (Other)
  Sender: FDA-Public Use
  Company Number: US-LANTHEUS-LMI-2022-00458

PATIENT
  Age: 43 Year
  Sex: Female

DRUGS (1)
  1. DEFINITY [Suspect]
     Active Substance: PERFLUTREN
     Indication: Echocardiogram
     Dosage: 0.45 MILLILITRE (1.3 ML DEFINITY PREPARED IN 8.7 ML DILUENT)
     Route: 042
     Dates: start: 20220422, end: 20220422

REACTIONS (5)
  - Blood pressure increased [Not Recovered/Not Resolved]
  - Illness [Unknown]
  - Headache [Not Recovered/Not Resolved]
  - Nausea [Unknown]
  - Back pain [Recovered/Resolved]

NARRATIVE: CASE EVENT DATE: 20220422
